FAERS Safety Report 6422621-7 (Version None)
Quarter: 2009Q4

REPORT INFORMATION
  Report Type: 
  Country: None (occurrence: None)
  Receive Date: 20091102
  Receipt Date: 20091005
  Transmission Date: 20100525
  Serious: No
  Sender: FDA-Public Use
  Company Number: US-BAYER-200935553NA

PATIENT
  Sex: Female

DRUGS (3)
  1. CIPRO [Suspect]
     Indication: DRUG USE FOR UNKNOWN INDICATION
  2. AVELOX [Suspect]
     Indication: PNEUMONIA
     Dosage: 2 COURSES BACK TO BACK
     Dates: start: 20090601
  3. AVELOX [Suspect]
     Dates: start: 20091001

REACTIONS (4)
  - CHEST DISCOMFORT [None]
  - CONSTIPATION [None]
  - DRUG HYPERSENSITIVITY [None]
  - URTICARIA [None]
